FAERS Safety Report 10541235 (Version 2)
Quarter: 2014Q4

REPORT INFORMATION
  Report Type: Spontaneous
  Country: US (occurrence: None)
  Receive Date: 20141010
  Receipt Date: 20141205
  Transmission Date: 20150529
  Serious: Yes (Disabling, Other)
  Sender: FDA-Public Use
  Company Number: 163-POMAL-14053390

PATIENT
  Age: 60 Year
  Sex: Male

DRUGS (4)
  1. MSIR (MORPHINE SULFATE) [Concomitant]
  2. POMALYST [Suspect]
     Active Substance: POMALIDOMIDE
     Indication: PLASMA CELL MYELOMA
     Dosage: 21 IN 21 D
     Route: 048
     Dates: start: 20140425, end: 20140509
  3. COUMADIN [Concomitant]
     Active Substance: WARFARIN SODIUM
  4. MS CONTIN (MORPHINE SULFATE) [Concomitant]

REACTIONS (3)
  - Rash [None]
  - Oedema peripheral [None]
  - Dermatitis allergic [None]

NARRATIVE: CASE EVENT DATE: 20140502
